FAERS Safety Report 21378128 (Version 1)
Quarter: 2022Q3

REPORT INFORMATION
  Report Type: Report from Study
  Country: US (occurrence: US)
  Receive Date: 20220926
  Receipt Date: 20220926
  Transmission Date: 20221026
  Serious: Yes (Other)
  Sender: FDA-Public Use
  Company Number: US-BIOGEN-2022BI01157010

PATIENT
  Sex: Female

DRUGS (12)
  1. SPINRAZA [Suspect]
     Active Substance: NUSINERSEN
     Indication: Spinal muscular atrophy
     Route: 050
     Dates: start: 201801, end: 202012
  2. SPINRAZA [Suspect]
     Active Substance: NUSINERSEN
     Route: 050
     Dates: start: 20220216
  3. BETAMETHASONE VALERATE [Concomitant]
     Active Substance: BETAMETHASONE VALERATE
     Indication: Product used for unknown indication
     Route: 050
     Dates: start: 20220114
  4. CLONAZEPAM [Concomitant]
     Active Substance: CLONAZEPAM
     Indication: Product used for unknown indication
     Dosage: TWO TABS EVERY OTHER DAY ALONG WITH THREE 0.5 TABLETS FOR TOTAL OF 5.5 MILLIGRAMS  EVERY OTHER DA...
     Route: 050
     Dates: start: 20210108
  5. DILAUDID [Concomitant]
     Active Substance: HYDROMORPHONE HYDROCHLORIDE
     Indication: Product used for unknown indication
     Dosage: 1MG/ML??20 MG EVERY DAY - 10 MG IN THE MORNING, 6 MG IN THE AFTERNOON, AND 4 MG IN THE EVENING
     Route: 050
     Dates: start: 20210720
  6. MOTRIN [Concomitant]
     Active Substance: IBUPROFEN
     Indication: Product used for unknown indication
     Dosage: EVERY 6 HOURS AS NEEDED
     Route: 050
  7. KETOCONAZOLE [Concomitant]
     Active Substance: KETOCONAZOLE
     Indication: Product used for unknown indication
     Dosage: SHAMPOO DAILY, LEAVE ON FOR 5-10 MINUTES. THEN RINSE
     Route: 050
     Dates: start: 20220127
  8. NARCAN [Concomitant]
     Active Substance: NALOXONE HYDROCHLORIDE
     Indication: Product used for unknown indication
     Dosage: SPRAY 0.1 ML (4MG) INTO ONE NOSTRIL FOR SUSPECTED OVERDOSE. REPEAT INTO OTHER NOSTRIL AFTER 2 TO ...
     Route: 050
     Dates: start: 20190114
  9. PHENERGAN [Concomitant]
     Active Substance: PROMETHAZINE HYDROCHLORIDE
     Indication: Product used for unknown indication
     Dosage: 25 MG BY MOUTH EVERY 6 HOURS AS NEEDED
     Route: 050
     Dates: start: 20211019
  10. BELSOMRA [Concomitant]
     Active Substance: SUVOREXANT
     Indication: Product used for unknown indication
     Dosage: AT BEDTIME
     Route: 050
     Dates: start: 20201212
  11. EFFEXOR [Concomitant]
     Active Substance: VENLAFAXINE HYDROCHLORIDE
     Indication: Product used for unknown indication
     Route: 050
     Dates: start: 20220321
  12. NUTREN 1.0 [Concomitant]
     Indication: Product used for unknown indication
     Dosage: 0.04 GRAM-1KCAL/ML LIQD
     Route: 050

REACTIONS (1)
  - Gastrointestinal stromal tumour [Unknown]
